FAERS Safety Report 18950776 (Version 1)
Quarter: 2021Q1

REPORT INFORMATION
  Report Type: Spontaneous
  Country: US (occurrence: US)
  Receive Date: 20210228
  Receipt Date: 20210228
  Transmission Date: 20210420
  Serious: No
  Sender: FDA-Public Use
  Company Number: US-ROCHE-2687949

PATIENT
  Sex: Female
  Weight: 47.67 kg

DRUGS (1)
  1. XOLAIR [Suspect]
     Active Substance: OMALIZUMAB
     Indication: IDIOPATHIC URTICARIA
     Route: 058
     Dates: start: 20200828

REACTIONS (6)
  - Off label use [Unknown]
  - Cough [Unknown]
  - Oropharyngeal pain [Unknown]
  - Urticaria [Unknown]
  - Cheilitis [Unknown]
  - Intentional product misuse [Unknown]
